FAERS Safety Report 4302757-7 (Version None)
Quarter: 2004Q1

REPORT INFORMATION
  Report Type: 
  Country: None (occurrence: None)
  Receive Date: 20040224
  Receipt Date: 20030416
  Transmission Date: 20041129
  Serious: Yes (Other)
  Sender: FDA-Public Use
  Company Number: US-BRISTOL-MYERS SQUIBB COMPANY-12243697

PATIENT
  Age: 45 Year
  Sex: Female
  Weight: 63 kg

DRUGS (5)
  1. KENALOG [Suspect]
     Indication: MUSCLE SPASMS
     Dosage: ROUTE: INJECTION
     Dates: start: 20030201, end: 20030201
  2. SERZONE [Concomitant]
  3. WELLBUTRIN [Concomitant]
  4. RHINOCORT [Concomitant]
  5. PULMICORT [Concomitant]

REACTIONS (1)
  - CUSHING'S SYNDROME [None]
